FAERS Safety Report 6811977-9 (Version None)
Quarter: 2010Q3

REPORT INFORMATION
  Report Type: 
  Country: None (occurrence: None)
  Receive Date: 20100701
  Receipt Date: 20100618
  Transmission Date: 20110219
  Serious: Yes (Other)
  Sender: FDA-Public Use
  Company Number: US-ELI_LILLY_AND_COMPANY-US201006001426

PATIENT
  Sex: Female

DRUGS (7)
  1. FORTEO [Suspect]
     Indication: OSTEOPOROSIS
     Dosage: 20 UG, DAILY (1/D)
     Dates: start: 20100507, end: 20100529
  2. FORTEO [Suspect]
     Dosage: 20 UG, DAILY (1/D)
     Dates: start: 20100531
  3. ENBREL [Concomitant]
     Dosage: UNK, WEEKLY (1/W)
     Dates: start: 20091201
  4. SINEMET [Concomitant]
  5. MIRAPEX [Concomitant]
  6. DYAZIDE [Concomitant]
  7. SYNTHROID [Concomitant]

REACTIONS (12)
  - ANXIETY [None]
  - BEDRIDDEN [None]
  - BLOOD CHOLESTEROL INCREASED [None]
  - BLOOD PRESSURE INCREASED [None]
  - DRUG DOSE OMISSION [None]
  - FEELING ABNORMAL [None]
  - KIDNEY INFECTION [None]
  - MUSCLE DISORDER [None]
  - MUSCULOSKELETAL PAIN [None]
  - PAIN [None]
  - PARKINSON'S DISEASE [None]
  - RHEUMATOID ARTHRITIS [None]
